FAERS Safety Report 9758953 (Version 1)
Quarter: 2013Q4

REPORT INFORMATION
  Report Type: Spontaneous
  Country: US (occurrence: US)
  Receive Date: 20131216
  Receipt Date: 20131216
  Transmission Date: 20140711
  Serious: Yes (Other)
  Sender: FDA-Public Use
  Company Number: US-BAYER-2013-149332

PATIENT
  Age: 21 Year
  Sex: Female

DRUGS (1)
  1. NEXAVAR [Suspect]
     Indication: DESMOID TUMOUR
     Dosage: 400 MG
     Route: 048
     Dates: start: 201311

REACTIONS (3)
  - Skin toxicity [None]
  - Rash [None]
  - Off label use [None]
